FAERS Safety Report 6220904-7 (Version None)
Quarter: 2009Q2

REPORT INFORMATION
  Report Type: 
  Country: None (occurrence: None)
  Receive Date: 20090610
  Receipt Date: 20090130
  Transmission Date: 20091009
  Serious: Yes (Hospitalization, Other)
  Sender: FDA-Public Use
  Company Number: AU-PFIZER INC-2008157043

PATIENT
  Age: 5 Year
  Sex: Female

DRUGS (20)
  1. METRONIDAZOLE AND METRONIDAZOLE BENZOATE AND METRONIDAZOLE HYDROCHLORI [Suspect]
  2. ONDANSETRON HCL [Suspect]
  3. OMEPRAZOLE [Suspect]
  4. PREDNISOLONE AND PREDNISOLONE STEAGLATE [Suspect]
  5. TRIMETHOPRIM + SULFAMETHOXAZOLE [Suspect]
  6. CYCLOSPORINE [Suspect]
  7. FRUSEMIDE [Suspect]
  8. ITRACONAZOLE [Suspect]
  9. MELPHALAN [Suspect]
     Route: 042
  10. GALENIC /CLAVULANIC ACID/TICARCILLIN/ [Concomitant]
  11. NIFEDIPINE [Concomitant]
  12. METOCLOPRAMIDE [Concomitant]
  13. GENTAMICIN [Concomitant]
  14. CEPHALOTHIN [Concomitant]
  15. ONDANSETROL HCL [Suspect]
  16. TRIMETHOPRIM + SULFAMETHOXAZOLE [Suspect]
  17. CYCLOSPORINE [Suspect]
  18. ITRACONAZOLE (UNSPECIFIED) - SUSPECT DRUG #7 [Concomitant]
  19. MELPHALAN (UNSPECIFIED) - SUSPECT DRUG #8 [Concomitant]
  20. OMEPRAZOLE (UNSPECIFIED) - SUSPECT DRUG #9 [Concomitant]

REACTIONS (4)
  - ANAEMIA [None]
  - BLOOD AMYLASE INCREASED [None]
  - OEDEMA [None]
  - PANCREATITIS [None]
